FAERS Safety Report 14544402 (Version 1)
Quarter: 2018Q1

REPORT INFORMATION
  Report Type: Report from Study
  Country: None (occurrence: SY)
  Receive Date: 20180217
  Receipt Date: 20180217
  Transmission Date: 20180509
  Serious: Yes (Death)
  Sender: FDA-Public Use
  Company Number: LB-ABBVIE-18K-093-2260003-00

PATIENT
  Age: 27 Year
  Sex: Male
  Weight: 70 kg

DRUGS (2)
  1. HUMIRA [Suspect]
     Active Substance: ADALIMUMAB
     Indication: PSORIASIS
     Dosage: 80 MG LOADING DOSE
     Route: 058
     Dates: start: 201609, end: 201609
  2. HUMIRA [Suspect]
     Active Substance: ADALIMUMAB
     Route: 058
     Dates: start: 201610, end: 2017

REACTIONS (2)
  - Accidental death [Fatal]
  - Gun shot wound [Fatal]

NARRATIVE: CASE EVENT DATE: 20170829
